FAERS Safety Report 17299700 (Version 1)
Quarter: 2020Q1

REPORT INFORMATION
  Report Type: Spontaneous
  Country: US (occurrence: US)
  Receive Date: 20200121
  Receipt Date: 20200121
  Transmission Date: 20200409
  Serious: Yes (Other)
  Sender: FDA-Public Use
  Company Number: None

PATIENT
  Age: 52 Year
  Sex: Female

DRUGS (4)
  1. N/A [Concomitant]
     Active Substance: UNSPECIFIED INGREDIENT
  2. N/A [Concomitant]
     Active Substance: UNSPECIFIED INGREDIENT
  3. XELJANZ XR [Suspect]
     Active Substance: TOFACITINIB CITRATE
     Indication: RHEUMATOID ARTHRITIS
     Route: 048
     Dates: start: 20190412, end: 20200121
  4. N/A [Concomitant]
     Active Substance: UNSPECIFIED INGREDIENT

REACTIONS (4)
  - Blood pressure decreased [None]
  - Throat tightness [None]
  - Heart rate irregular [None]
  - Pruritus [None]

NARRATIVE: CASE EVENT DATE: 20191119
